FAERS Safety Report 4946272-6 (Version None)
Quarter: 2006Q1

REPORT INFORMATION
  Report Type: 
  Country: None (occurrence: None)
  Receive Date: 20060317
  Receipt Date: 20060307
  Transmission Date: 20060701
  Serious: Yes (Death)
  Sender: FDA-Public Use
  Company Number: IT-JNJFOC-20060103958

PATIENT
  Sex: Male
  Weight: 81 kg

DRUGS (5)
  1. REOPRO [Suspect]
     Indication: ACUTE MYOCARDIAL INFARCTION
  2. RETEPLASE [Suspect]
     Indication: ACUTE MYOCARDIAL INFARCTION
     Route: 042
  3. COMMERCIAL ABCIXIMAB [Suspect]
     Dosage: 4.0 ML IN 46 ML DILUENT AT RATE OF 4 ML/HR
     Route: 042
  4. COMMERCIAL ABCIXIMAB [Suspect]
     Indication: ACUTE MYOCARDIAL INFARCTION
     Route: 042
  5. HEPARIN [Concomitant]

REACTIONS (1)
  - MYOCARDIAL RUPTURE [None]
